FAERS Safety Report 15534789 (Version 1)
Quarter: 2018Q4

REPORT INFORMATION
  Report Type: Spontaneous
  Country: US (occurrence: US)
  Receive Date: 20181022
  Receipt Date: 20181022
  Transmission Date: 20190205
  Serious: No
  Sender: FDA-Public Use
  Company Number: US-TEVA-2018-US-963741

PATIENT
  Sex: Female

DRUGS (1)
  1. ROPINTAB-A [Suspect]
     Active Substance: ROPINIROLE
     Indication: PARKINSON^S DISEASE
     Dosage: EXTENDED-RELEASE TABLETS
     Dates: start: 20181009

REACTIONS (2)
  - Dizziness [Unknown]
  - Product substitution issue [Unknown]

NARRATIVE: CASE EVENT DATE: 20181009
